FAERS Safety Report 7388303-2 (Version None)
Quarter: 2011Q1

REPORT INFORMATION
  Report Type: 
  Country: None (occurrence: None)
  Receive Date: 20110324
  Receipt Date: 20110310
  Transmission Date: 20110831
  Serious: Yes (Hospitalization)
  Sender: FDA-Public Use
  Company Number: LTI2011A00056

PATIENT
  Age: 70 Year
  Sex: Male

DRUGS (1)
  1. ACTOS [Suspect]
     Indication: TYPE 2 DIABETES MELLITUS
     Dosage: 30 MG (30 MG,1 IN 1 D) ORAL
     Route: 048
     Dates: start: 20080101, end: 20110201

REACTIONS (5)
  - FEMORAL NECK FRACTURE [None]
  - WRIST FRACTURE [None]
  - FALL [None]
  - ARRHYTHMIA [None]
  - HEART RATE INCREASED [None]
